FAERS Safety Report 20913640 (Version 4)
Quarter: 2023Q2

REPORT INFORMATION
  Report Type: Report from Study
  Country: US (occurrence: US)
  Receive Date: 20220604
  Receipt Date: 20230504
  Transmission Date: 20230721
  Serious: No
  Sender: FDA-Public Use
  Company Number: US-NOVARTISTESTPH-NVSC2022US128468

PATIENT
  Sex: Female

DRUGS (2)
  1. MAYZENT [Suspect]
     Active Substance: SIPONIMOD
     Indication: Product used for unknown indication
     Dosage: 0.25 MG
     Route: 048
  2. MAYZENT [Suspect]
     Active Substance: SIPONIMOD
     Dosage: 2 MG
     Route: 065

REACTIONS (5)
  - Disease progression [Unknown]
  - Arthralgia [Unknown]
  - Pelvic pain [Unknown]
  - Movement disorder [Unknown]
  - Pain in extremity [Unknown]
